FAERS Safety Report 18084982 (Version 3)
Quarter: 2025Q3

REPORT INFORMATION
  Report Type: Spontaneous
  Country: US (occurrence: US)
  Receive Date: 20200728
  Receipt Date: 20250716
  Transmission Date: 20251021
  Serious: No
  Sender: GALPHARM INTERNATIONAL
  Company Number: US-PERRIGO-20US005467

PATIENT
  Sex: Female
  Weight: 56.236 kg

DRUGS (15)
  1. MINOXIDIL [Suspect]
     Active Substance: MINOXIDIL
     Indication: Alopecia
     Route: 061
     Dates: start: 201906, end: 202004
  2. MINOXIDIL [Suspect]
     Active Substance: MINOXIDIL
     Dosage: 1 ML, BID
     Route: 061
     Dates: start: 202004
  3. MINOXIDIL [Suspect]
     Active Substance: MINOXIDIL
     Indication: Alopecia
     Route: 061
     Dates: start: 2020, end: 20221210
  4. MINOXIDIL [Suspect]
     Active Substance: MINOXIDIL
     Route: 061
     Dates: start: 202409
  5. MINOXIDIL [Suspect]
     Active Substance: MINOXIDIL
     Indication: Alopecia
     Route: 061
     Dates: start: 2019, end: 202004
  6. CALCIUM [Concomitant]
     Active Substance: CALCIUM
     Indication: Routine health maintenance
     Route: 065
     Dates: start: 2018
  7. VITAMINS [Concomitant]
     Active Substance: VITAMINS
     Indication: Supplementation therapy
     Route: 065
     Dates: start: 2018
  8. TURMERIC                           /01079602/ [Concomitant]
     Indication: Routine health maintenance
     Route: 065
     Dates: start: 2018
  9. OMEGA 3                            /01333901/ [Concomitant]
     Indication: Supplementation therapy
     Route: 065
     Dates: start: 2018
  10. RALOXIFENE [Concomitant]
     Active Substance: RALOXIFENE
     Indication: Routine health maintenance
     Route: 065
     Dates: start: 2018
  11. LISINOPRIL [Concomitant]
     Active Substance: LISINOPRIL
     Indication: Blood pressure abnormal
     Route: 065
     Dates: start: 2018
  12. BIOTIN [Concomitant]
     Active Substance: BIOTIN
     Indication: Alopecia
     Route: 065
  13. VITAMIN D NOS [Concomitant]
     Active Substance: CHOLECALCIFEROL\ERGOCALCIFEROL
     Indication: Supplementation therapy
     Route: 065
  14. METOPROLOL [Concomitant]
     Active Substance: METOPROLOL
     Indication: Hypertension
     Route: 065
  15. MINOXIDIL [Concomitant]
     Active Substance: MINOXIDIL
     Indication: Alopecia
     Route: 048

REACTIONS (7)
  - Condition aggravated [Not Recovered/Not Resolved]
  - Hypertrichosis [Recovered/Resolved]
  - Hair texture abnormal [Unknown]
  - Off label use [Unknown]
  - Overdose [Recovered/Resolved]
  - Drug ineffective [Not Recovered/Not Resolved]
  - Expired product administered [Unknown]

NARRATIVE: CASE EVENT DATE: 20190101
